FAERS Safety Report 4685590-6 (Version None)
Quarter: 2005Q2

REPORT INFORMATION
  Report Type: 
  Country: None (occurrence: None)
  Receive Date: 20050608
  Receipt Date: 20050531
  Transmission Date: 20051028
  Serious: Yes (Hospitalization)
  Sender: FDA-Public Use
  Company Number: US-ABBOTT-05P-163-0301942-00

PATIENT
  Sex: Female

DRUGS (2)
  1. TARKA [Suspect]
     Indication: DRUG USE FOR UNKNOWN INDICATION
  2. PROPRANOLOL [Suspect]
     Indication: DRUG USE FOR UNKNOWN INDICATION

REACTIONS (2)
  - ASTHENIA [None]
  - HEART RATE DECREASED [None]
